FAERS Safety Report 5394854-2 (Version None)
Quarter: 2007Q3

REPORT INFORMATION
  Report Type: 
  Country: None (occurrence: None)
  Receive Date: 20070720
  Receipt Date: 20070704
  Transmission Date: 20080115
  Serious: Yes (Hospitalization)
  Sender: FDA-Public Use
  Company Number: 2007JP002094

PATIENT
  Age: 75 Year
  Sex: Female
  Weight: 35 kg

DRUGS (14)
  1. TACROLIMUS [Suspect]
     Indication: RHEUMATOID ARTHRITIS
     Dosage: 1 MG, /D, ORAL; 1.5 MG /D, ORAL; 2 MG, /D, ORAL
     Route: 048
     Dates: start: 20060606, end: 20060903
  2. TACROLIMUS [Suspect]
     Indication: RHEUMATOID ARTHRITIS
     Dosage: 1 MG, /D, ORAL; 1.5 MG /D, ORAL; 2 MG, /D, ORAL
     Route: 048
     Dates: start: 20060904, end: 20061001
  3. TACROLIMUS [Suspect]
     Indication: RHEUMATOID ARTHRITIS
     Dosage: 1 MG, /D, ORAL; 1.5 MG /D, ORAL; 2 MG, /D, ORAL
     Route: 048
     Dates: start: 20061002, end: 20061018
  4. BUCILLAMINE (BUCILLAMINE) [Concomitant]
  5. PREDNISOLONE [Concomitant]
  6. VOLTAREN MODIFIED RELEASE CAPSULE [Concomitant]
  7. KETOPROFEN [Concomitant]
  8. ONEALFA (ALFACALCIDOL) [Concomitant]
  9. LEVOTHYROXINE SODIUM [Concomitant]
  10. LOSARTAN POTASSIUM [Concomitant]
  11. ACTONEL [Concomitant]
  12. NATEGLINIDE [Concomitant]
  13. MECOBALAMIN (MECOBALAMIN) [Concomitant]
  14. CYTOTEC [Concomitant]

REACTIONS (4)
  - CARDIAC FAILURE [None]
  - DIABETES MELLITUS [None]
  - ECZEMA [None]
  - MYOCARDIAL INFARCTION [None]
